FAERS Safety Report 15265793 (Version 1)
Quarter: 2018Q3

REPORT INFORMATION
  Report Type: Spontaneous
  Country: US (occurrence: US)
  Receive Date: 20180723
  Receipt Date: 20180723
  Transmission Date: 20181010
  Serious: Yes (Hospitalization)
  Sender: FDA-Public Use
  Company Number: None

PATIENT
  Age: 71 Year
  Sex: Male

DRUGS (7)
  1. TAMSULOSIN [Concomitant]
     Active Substance: TAMSULOSIN
  2. METROPOL TAR [Concomitant]
  3. TALTZ [Suspect]
     Active Substance: IXEKIZUMAB
     Indication: PSORIASIS
     Route: 058
     Dates: start: 20180721
  4. ASPIRIN. [Concomitant]
     Active Substance: ASPIRIN
  5. TRAMADOL. [Concomitant]
     Active Substance: TRAMADOL
  6. FOLIC ACID. [Concomitant]
     Active Substance: FOLIC ACID
  7. METHOTREXATE. [Concomitant]
     Active Substance: METHOTREXATE

REACTIONS (3)
  - Vertigo [None]
  - Nausea [None]
  - Dizziness [None]

NARRATIVE: CASE EVENT DATE: 20180710
